FAERS Safety Report 6895954-8 (Version None)
Quarter: 2010Q3

REPORT INFORMATION
  Report Type: 
  Country: None (occurrence: None)
  Receive Date: 20100728
  Receipt Date: 20100722
  Transmission Date: 20110219
  Serious: Yes (Death, Hospitalization)
  Sender: FDA-Public Use
  Company Number: 2010US002893

PATIENT
  Age: 37 Year
  Sex: Male
  Weight: 79 kg

DRUGS (1)
  1. MYCAMINE [Suspect]
     Indication: CANDIDIASIS
     Dosage: IV NOS
     Route: 042
     Dates: start: 20100716, end: 20100720

REACTIONS (1)
  - HEPATIC ENCEPHALOPATHY [None]
